FAERS Safety Report 15756835 (Version 1)
Quarter: 2018Q4

REPORT INFORMATION
  Report Type: Spontaneous
  Country: US (occurrence: US)
  Receive Date: 20181206
  Receipt Date: 20181206
  Transmission Date: 20190205
  Serious: No
  Sender: FDA-Public Use
  Company Number: None

PATIENT
  Age: 68 Year
  Sex: Male

DRUGS (2)
  1. MOZOBIL [Suspect]
     Active Substance: PLERIXAFOR
     Indication: BRAIN NEOPLASM MALIGNANT
     Route: 042
     Dates: start: 201812
  2. TEMOZOLOMIDE. [Concomitant]
     Active Substance: TEMOZOLOMIDE

REACTIONS (1)
  - Off label use [None]

NARRATIVE: CASE EVENT DATE: 20181205
